FAERS Safety Report 7821192-8 (Version None)
Quarter: 2011Q4

REPORT INFORMATION
  Report Type: 
  Country: None (occurrence: None)
  Receive Date: 20111018
  Receipt Date: 20110922
  Transmission Date: 20120403
  Serious: No
  Sender: FDA-Public Use
  Company Number: US-B.I. PHARMACEUTICALS,INC./RIDGEFIELD-2011-BP-22723BP

PATIENT
  Age: 49 Year
  Sex: Male

DRUGS (14)
  1. ATENOLOL [Concomitant]
     Indication: HYPERTENSION
     Route: 048
  2. MULTIPLE VIT [Concomitant]
     Indication: VITAMIN SUPPLEMENTATION
     Route: 048
  3. NAPROXAN SODIUM [Concomitant]
     Indication: BACK PAIN
     Route: 048
  4. NEXIUM [Concomitant]
     Indication: GASTROOESOPHAGEAL REFLUX DISEASE
     Route: 048
  5. HYDROCHLOROTHIAZIDE [Concomitant]
     Indication: HYPERTENSION
     Route: 048
  6. ASCORBIC ACID [Concomitant]
     Indication: VITAMIN SUPPLEMENTATION
     Route: 048
  7. NAPROXAN SODIUM [Concomitant]
     Indication: OSTEOARTHRITIS
  8. DIAZEPAM [Concomitant]
     Indication: SLEEP DISORDER
     Route: 048
  9. HYDROCODONE BITARTRATE [Concomitant]
     Indication: OSTEOARTHRITIS
     Route: 048
  10. TRIAMTERINE [Concomitant]
     Indication: OEDEMA
     Route: 048
  11. HYDROCODONE BITARTRATE [Concomitant]
     Indication: ARTHRALGIA
  12. SPIRIVA [Suspect]
     Indication: CHRONIC OBSTRUCTIVE PULMONARY DISEASE
     Dosage: 18 MCG
     Route: 055
     Dates: start: 20110801, end: 20110901
  13. CALAN [Concomitant]
     Indication: HYPERTENSION
     Route: 048
  14. ALBUTEROL INHALER [Concomitant]
     Indication: CHRONIC OBSTRUCTIVE PULMONARY DISEASE
     Route: 055

REACTIONS (2)
  - MUSCULAR WEAKNESS [None]
  - OEDEMA PERIPHERAL [None]
